FAERS Safety Report 9290059 (Version 1)
Quarter: 2013Q2

REPORT INFORMATION
  Report Type: Spontaneous
  Country: US (occurrence: None)
  Receive Date: 20130514
  Receipt Date: 20130514
  Transmission Date: 20140414
  Serious: Yes (Other)
  Sender: FDA-Public Use
  Company Number: None

PATIENT
  Age: 52 Year
  Sex: Male
  Weight: 99.79 kg

DRUGS (5)
  1. JANUMET [Suspect]
     Indication: DIABETES MELLITUS
     Route: 048
     Dates: start: 20120113, end: 20120410
  2. TRADJENTA [Suspect]
     Route: 048
     Dates: start: 20120410, end: 20120420
  3. VALSARTAN HCTZ [Concomitant]
  4. ATORVASTATIN [Concomitant]
  5. TRICOR [Concomitant]

REACTIONS (1)
  - Renal failure [None]
